FAERS Safety Report 5935755-8 (Version None)
Quarter: 2008Q4

REPORT INFORMATION
  Report Type: 
  Country: None (occurrence: None)
  Receive Date: 20081030
  Receipt Date: 20081022
  Transmission Date: 20090506
  Serious: Yes (Hospitalization)
  Sender: FDA-Public Use
  Company Number: DE-WATSON-2008-06328

PATIENT
  Age: 38 Year
  Sex: Female

DRUGS (1)
  1. MORPHINE SULFATE INJ [Suspect]
     Indication: EXTUBATION
     Dosage: 0.1 MG/KG, PER BODY WEIGHT,PER HOUR
     Dates: start: 20080101, end: 20080101

REACTIONS (3)
  - LUNG INJURY [None]
  - PULMONARY OEDEMA [None]
  - RESPIRATORY DISTRESS [None]
